FAERS Safety Report 12701343 (Version 23)
Quarter: 2018Q3

REPORT INFORMATION
  Report Type: Report from Study
  Country: CA (occurrence: CA)
  Receive Date: 20160831
  Receipt Date: 20180824
  Transmission Date: 20181010
  Serious: Yes (Hospitalization, Other)
  Sender: FDA-Public Use
  Company Number: CA-ROCHE-1721812

PATIENT
  Age: 72 Year
  Sex: Male
  Weight: 42.68 kg

DRUGS (17)
  1. MORPHINE [Suspect]
     Active Substance: MORPHINE
     Indication: PRODUCT USED FOR UNKNOWN INDICATION
     Route: 065
  2. ULORIC [Concomitant]
     Active Substance: FEBUXOSTAT
  3. PREDNISONE. [Concomitant]
     Active Substance: PREDNISONE
  4. ALFUZOSIN [Concomitant]
     Active Substance: ALFUZOSIN
  5. ACETYLSALICYLIC ACID [Concomitant]
     Active Substance: ASPIRIN
  6. HYDROXYZINE [Concomitant]
     Active Substance: HYDROXYZINE HYDROCHLORIDE
  7. ACTEMRA [Suspect]
     Active Substance: TOCILIZUMAB
     Route: 042
     Dates: start: 20180612
  8. TYLENOL #1 (CANADA) [Concomitant]
     Active Substance: ACETAMINOPHEN\CAFFEINE\CODEINE PHOSPHATE
     Route: 065
  9. ACLASTA [Concomitant]
     Active Substance: ZOLEDRONIC ACID
     Route: 065
  10. LASIX [Concomitant]
     Active Substance: FUROSEMIDE
  11. ACTEMRA [Suspect]
     Active Substance: TOCILIZUMAB
     Indication: RHEUMATOID ARTHRITIS
     Route: 042
     Dates: start: 20160204
  12. ACTEMRA [Suspect]
     Active Substance: TOCILIZUMAB
     Dosage: INFUSION #15
     Route: 042
     Dates: start: 20170810
  13. ACTEMRA [Suspect]
     Active Substance: TOCILIZUMAB
     Dosage: PERFUSION NUMBER; 20
     Route: 042
     Dates: start: 20180312
  14. BISOPROLOL [Concomitant]
     Active Substance: BISOPROLOL
  15. ACTEMRA [Suspect]
     Active Substance: TOCILIZUMAB
     Route: 042
     Dates: start: 20160829
  16. PANTOLOC [Concomitant]
     Active Substance: PANTOPRAZOLE SODIUM
  17. EURO?K [Concomitant]

REACTIONS (25)
  - Musculoskeletal pain [Not Recovered/Not Resolved]
  - Infectious colitis [Unknown]
  - Pain [Not Recovered/Not Resolved]
  - Tinnitus [Unknown]
  - Pollakiuria [Not Recovered/Not Resolved]
  - Humerus fracture [Recovered/Resolved]
  - Decreased appetite [Unknown]
  - Ecchymosis [Unknown]
  - Rhinorrhoea [Not Recovered/Not Resolved]
  - Malnutrition [Unknown]
  - Bursitis [Unknown]
  - Blood pressure fluctuation [Unknown]
  - Asthenia [Not Recovered/Not Resolved]
  - Blood pressure decreased [Unknown]
  - Weight decreased [Not Recovered/Not Resolved]
  - Hernia [Recovered/Resolved]
  - Cough [Not Recovered/Not Resolved]
  - Fall [Unknown]
  - Upper limb fracture [Unknown]
  - Heart rate decreased [Unknown]
  - Pain in extremity [Unknown]
  - Hypertension [Unknown]
  - Nasopharyngitis [Recovering/Resolving]
  - Pharyngitis [Recovering/Resolving]
  - Diarrhoea [Not Recovered/Not Resolved]

NARRATIVE: CASE EVENT DATE: 20160303
